FAERS Safety Report 9015835 (Version 2)
Quarter: 2013Q1

REPORT INFORMATION
  Report Type: Spontaneous
  Country: None (occurrence: None)
  Receive Date: 20130103
  Receipt Date: 20130110
  Transmission Date: 20140127
  Serious: Yes (Other)
  Sender: FDA-Public Use
  Company Number: 2012VX005754

PATIENT
  Age: 82 Year
  Sex: Female

DRUGS (4)
  1. TIMOPTOL [Suspect]
     Indication: PRODUCT USED FOR UNKNOWN INDICATION
     Dates: start: 201204
  2. DEXAMETHASONE (DEXAMETHASONE) [Suspect]
     Indication: PRODUCT USED FOR UNKNOWN INDICATION
     Dates: start: 201204
  3. PREDNISOLONE (PREDNISOLONE) [Suspect]
     Indication: PRODUCT USED FOR UNKNOWN INDICATION
     Dates: start: 201204
  4. LOTEMAX [Suspect]
     Indication: FUNGAL INFECTION
     Route: 047
     Dates: start: 201006

REACTIONS (1)
  - Blindness unilateral [None]
